FAERS Safety Report 8850521 (Version 2)
Quarter: 2013Q1

REPORT INFORMATION
  Report Type: Report from Study
  Country: JP (occurrence: JP)
  Receive Date: 20121019
  Receipt Date: 20130318
  Transmission Date: 20140127
  Serious: Yes (Life-Threatening, Hospitalization)
  Sender: FDA-Public Use
  Company Number: JP-ROCHE-1146621

PATIENT
  Age: 88 Year
  Sex: Female
  Weight: 55 kg

DRUGS (22)
  1. OMALIZUMAB [Suspect]
     Indication: ASTHMA
     Route: 058
     Dates: start: 20100706
  2. OMALIZUMAB [Suspect]
     Route: 058
     Dates: start: 20100803
  3. OMALIZUMAB [Suspect]
     Route: 058
     Dates: start: 20100831
  4. OMALIZUMAB [Suspect]
     Route: 058
     Dates: start: 20100928
  5. OMALIZUMAB [Suspect]
     Route: 058
     Dates: start: 20101026
  6. OMALIZUMAB [Suspect]
     Route: 058
     Dates: start: 20101130
  7. OMALIZUMAB [Suspect]
     Route: 058
     Dates: start: 20101228
  8. OMALIZUMAB [Suspect]
     Route: 058
     Dates: start: 20110125, end: 20110203
  9. ADVAIR [Concomitant]
     Route: 065
     Dates: start: 20080715, end: 20110203
  10. SINGULAIR [Concomitant]
     Route: 065
     Dates: start: 20070309, end: 20110203
  11. ALVESCO [Concomitant]
     Route: 065
     Dates: start: 20100112, end: 20101026
  12. SULTANOL [Concomitant]
     Route: 065
     Dates: start: 20080617, end: 20110203
  13. SULTANOL [Concomitant]
     Route: 065
     Dates: start: 20061215
  14. LASIX [Concomitant]
     Route: 065
     Dates: start: 20070220
  15. ZYLORIC [Concomitant]
     Route: 065
     Dates: start: 20070220
  16. AMLODIN [Concomitant]
     Route: 065
     Dates: start: 20070220
  17. ALFAROL [Concomitant]
     Route: 065
     Dates: start: 20070220
  18. CARDENALIN [Concomitant]
     Route: 065
     Dates: start: 20070220
  19. LIVALO [Concomitant]
     Route: 065
     Dates: start: 20070220
  20. MOBIC [Concomitant]
     Route: 065
     Dates: start: 20070220
  21. HUMALOG [Concomitant]
     Route: 065
     Dates: start: 20070220
  22. PREMINENT [Concomitant]
     Route: 065
     Dates: start: 20070220

REACTIONS (2)
  - Cerebral infarction [Recovered/Resolved with Sequelae]
  - Cardiac failure [Recovered/Resolved with Sequelae]
